FAERS Safety Report 6909145-5 (Version None)
Quarter: 2010Q3

REPORT INFORMATION
  Report Type: 
  Country: None (occurrence: None)
  Receive Date: 20100805
  Receipt Date: 20090225
  Transmission Date: 20110219
  Serious: No
  Sender: FDA-Public Use
  Company Number: US-PFIZER INC-2009155973

PATIENT
  Sex: Female
  Weight: 62.6 kg

DRUGS (2)
  1. LYRICA [Suspect]
     Indication: NEUROPATHY PERIPHERAL
     Dosage: 75 MG, 1X/DAY
     Route: 048
     Dates: start: 20081119, end: 20081201
  2. TAXOL [Concomitant]
     Indication: BREAST CANCER
     Dosage: UNK

REACTIONS (3)
  - BURNING SENSATION [None]
  - OFF LABEL USE [None]
  - PARAESTHESIA [None]
